FAERS Safety Report 13966108 (Version 1)
Quarter: 2017Q3

REPORT INFORMATION
  Report Type: Report from Study
  Country: US (occurrence: US)
  Receive Date: 20170913
  Receipt Date: 20170913
  Transmission Date: 20171128
  Serious: Yes (Other)
  Sender: FDA-Public Use
  Company Number: US-SHIRE-US201721141

PATIENT
  Sex: Female

DRUGS (1)
  1. HUMAN NORMAL IMMUNOGLOBULIN SD [Suspect]
     Active Substance: HUMAN IMMUNOGLOBULIN G
     Indication: PRIMARY IMMUNODEFICIENCY SYNDROME
     Dosage: UNK
     Route: 042

REACTIONS (9)
  - Rhinitis [Unknown]
  - Sleep apnoea syndrome [Unknown]
  - Nausea [Unknown]
  - Poor venous access [Unknown]
  - Asthma [Unknown]
  - Chronic sinusitis [Unknown]
  - Dyspnoea [Unknown]
  - Headache [Unknown]
  - Bronchitis [Unknown]
